FAERS Safety Report 6376190-0 (Version None)
Quarter: 2009Q3

REPORT INFORMATION
  Report Type: 
  Country: None (occurrence: None)
  Receive Date: 20090918
  Receipt Date: 20090910
  Transmission Date: 20100115
  Serious: Yes (Death, Hospitalization)
  Sender: FDA-Public Use
  Company Number: OMPQ-NO-0907S-0662

PATIENT
  Age: 80 Year
  Sex: Female

DRUGS (5)
  1. OMNIPAQUE 300 [Suspect]
     Indication: DRUG USE FOR UNKNOWN INDICATION
     Dosage: SINGLE DOSE, I.V.
     Route: 042
     Dates: start: 20090521, end: 20090521
  2. ENALAPRIL MALEATE [Concomitant]
  3. HIDROCLOROTHIAZIDA (ESIDREX COMPRIMIDOS) [Concomitant]
  4. VERAPAMIL HCL [Concomitant]
  5. ACENOCUMAROL (SINTROM COMPRIMIDOS) [Concomitant]

REACTIONS (3)
  - CONDITION AGGRAVATED [None]
  - MULTI-ORGAN FAILURE [None]
  - RENAL FAILURE [None]
